FAERS Safety Report 4468669-3 (Version None)
Quarter: 2004Q4

REPORT INFORMATION
  Report Type: 
  Country: None (occurrence: None)
  Receive Date: 20041007
  Receipt Date: 20030605
  Transmission Date: 20050328
  Serious: Yes (Hospitalization, Other)
  Sender: FDA-Public Use
  Company Number: US-MERCK-0306USA00655

PATIENT
  Age: 54 Year
  Sex: Female
  Weight: 65 kg

DRUGS (5)
  1. TYLENOL [Concomitant]
     Route: 065
  2. LIPITOR [Concomitant]
     Route: 065
  3. AMARYL [Concomitant]
     Route: 048
  4. TOPROL-XL [Concomitant]
     Route: 048
  5. VIOXX [Suspect]
     Indication: BACK INJURY
     Route: 048
     Dates: start: 20010101

REACTIONS (16)
  - ADVERSE EVENT [None]
  - AMNESIA [None]
  - ANGINA PECTORIS [None]
  - ANGLE CLOSURE GLAUCOMA [None]
  - ANXIETY [None]
  - BLOOD PRESSURE INCREASED [None]
  - CEREBROVASCULAR ACCIDENT [None]
  - CHEST PAIN [None]
  - CONVULSION [None]
  - CORONARY ARTERY DISEASE [None]
  - CORONARY ARTERY STENOSIS [None]
  - DEPRESSION [None]
  - GASTRIC ULCER HAEMORRHAGE [None]
  - HYPERCHOLESTEROLAEMIA [None]
  - HYPERTENSION [None]
  - MYOCARDIAL INFARCTION [None]
